FAERS Safety Report 15517793 (Version 1)
Quarter: 2018Q4

REPORT INFORMATION
  Report Type: Spontaneous
  Country: JP (occurrence: JP)
  Receive Date: 20181017
  Receipt Date: 20181017
  Transmission Date: 20190205
  Serious: Yes (Other)
  Sender: FDA-Public Use
  Company Number: JP-PFIZER INC-2018411186

PATIENT

DRUGS (1)
  1. RHEUMATREX [Suspect]
     Active Substance: METHOTREXATE SODIUM
     Dosage: 4 MG, WEEKLY(2MG IN THE MORNING AND IN THE EVENING)
     Route: 048

REACTIONS (3)
  - Senile dementia [Unknown]
  - Agitation [Unknown]
  - Treatment noncompliance [Unknown]
